FAERS Safety Report 21923863 (Version 1)
Quarter: 2023Q1

REPORT INFORMATION
  Report Type: Spontaneous
  Country: BE (occurrence: BE)
  Receive Date: 20230130
  Receipt Date: 20230130
  Transmission Date: 20230418
  Serious: Yes (Other)
  Sender: FDA-Public Use
  Company Number: None

PATIENT
  Age: 77 Year
  Sex: Male
  Weight: 82 kg

DRUGS (12)
  1. CIPROFLOXACIN HYDROCHLORIDE [Suspect]
     Active Substance: CIPROFLOXACIN HYDROCHLORIDE
     Indication: Prostatitis
     Dates: start: 20211207, end: 20211216
  2. TAFAMIDIS [Concomitant]
     Active Substance: TAFAMIDIS
     Indication: Product used for unknown indication
     Dosage: 1 DOSAGE FORMS DAILY;  1*/D
  3. LASIX [Concomitant]
     Active Substance: FUROSEMIDE
     Indication: Product used for unknown indication
     Dosage: 1 DOSAGE FORMS DAILY;  1*/D
  4. ALDACTONE [Concomitant]
     Active Substance: SPIRONOLACTONE
     Indication: Product used for unknown indication
     Dosage: 1 DOSAGE FORMS DAILY;  1*/D
  5. XARELTO [Concomitant]
     Active Substance: RIVAROXABAN
     Indication: Product used for unknown indication
     Dosage: 1 DOSAGE FORMS DAILY;  1*/D
  6. CORDARONE [Concomitant]
     Active Substance: AMIODARONE HYDROCHLORIDE
     Indication: Product used for unknown indication
     Dosage: 1 DOSAGE FORMS DAILY; 1*/D
  7. SERTRALINE HYDROCHLORIDE [Concomitant]
     Active Substance: SERTRALINE HYDROCHLORIDE
     Indication: Product used for unknown indication
     Dosage: .5 DOSAGE FORMS DAILY;  1/2/D
  8. HYGROTON [Concomitant]
     Active Substance: CHLORTHALIDONE
     Indication: Product used for unknown indication
     Dosage: .5 DOSAGE FORMS DAILY;  1/2/D
  9. LYRICA [Concomitant]
     Active Substance: PREGABALIN
     Indication: Product used for unknown indication
     Dosage: 2 DOSAGE FORMS DAILY; 2*/D
  10. TRAZODONE [Concomitant]
     Active Substance: TRAZODONE HYDROCHLORIDE
     Indication: Product used for unknown indication
     Dosage: 1 DOSAGE FORMS DAILY;   1*/D
  11. Pantomed [Concomitant]
     Indication: Product used for unknown indication
     Dosage: 1 DOSAGE FORMS DAILY; 1*/D
  12. BISOPROLOL [Concomitant]
     Active Substance: BISOPROLOL
     Indication: Product used for unknown indication
     Dosage: 1 DOSAGE FORMS DAILY;  1*/D

REACTIONS (5)
  - Chronic kidney disease [Recovered/Resolved]
  - Leukocyturia [Recovered/Resolved]
  - Haematuria [Recovered/Resolved]
  - Eosinophilia [Recovered/Resolved]
  - Glomerular filtration rate decreased [Recovered/Resolved]

NARRATIVE: CASE EVENT DATE: 20211209
